FAERS Safety Report 17994381 (Version 1)
Quarter: 2020Q3

REPORT INFORMATION
  Report Type: Spontaneous
  Country: MX (occurrence: MX)
  Receive Date: 20200708
  Receipt Date: 20200708
  Transmission Date: 20201103
  Serious: No
  Sender: FDA-Public Use
  Company Number: MX-LUPIN PHARMACEUTICALS INC.-2019-05074

PATIENT
  Age: 46 Year
  Sex: Male

DRUGS (2)
  1. EXERAGOT PF [Suspect]
     Active Substance: BIMATOPROST
     Indication: PRODUCT USED FOR UNKNOWN INDICATION
     Dosage: 1 DROP, IN RIGHT EYE
     Route: 047
     Dates: start: 20190730
  2. LUMIGAN [Concomitant]
     Active Substance: BIMATOPROST
     Indication: PRODUCT USED FOR UNKNOWN INDICATION
     Dosage: 1 DROP, IN LEFT EYE
     Route: 047
     Dates: start: 20190730

REACTIONS (3)
  - Prescription drug used without a prescription [Unknown]
  - Odynophagia [Unknown]
  - Photophobia [Unknown]

NARRATIVE: CASE EVENT DATE: 20190730
